FAERS Safety Report 8771135 (Version 3)
Quarter: 2012Q4

REPORT INFORMATION
  Report Type: 
  Country: US (occurrence: US)
  Receive Date: 20120906
  Receipt Date: 20121220
  Transmission Date: 20130627
  Serious: Yes (Disabling)
  Sender: FDA-Public Use
  Company Number: US-009507513-1209USA001131

PATIENT
  Sex: Female

DRUGS (1)
  1. SAPHRIS [Suspect]
     Dosage: 5 mg, UNK
     Route: 060
     Dates: start: 20110829, end: 2011

REACTIONS (3)
  - Nerve injury [Unknown]
  - Aphthous stomatitis [Unknown]
  - Mouth ulceration [Not Recovered/Not Resolved]
